FAERS Safety Report 8891142 (Version 1)
Quarter: 2012Q4

REPORT INFORMATION
  Report Type: 
  Country: PT (occurrence: PT)
  Receive Date: 20121107
  Receipt Date: 20121107
  Transmission Date: 20130627
  Serious: Yes (Hospitalization)
  Sender: FDA-Public Use
  Company Number: PT-SHIRE-ALL1-2012-05418

PATIENT

DRUGS (1)
  1. VPRIV [Suspect]
     Indication: GAUCHER^S DISEASE
     Dosage: UNK, Unknown
     Route: 041
     Dates: start: 20100922

REACTIONS (2)
  - Cholecystitis [Unknown]
  - Biliary fistula [Unknown]
